FAERS Safety Report 6854344-4 (Version None)
Quarter: 2010Q3

REPORT INFORMATION
  Report Type: 
  Country: None (occurrence: None)
  Receive Date: 20100717
  Receipt Date: 20071219
  Transmission Date: 20110219
  Serious: No
  Sender: FDA-Public Use
  Company Number: US-PFIZER INC-2008002013

PATIENT
  Sex: Female
  Weight: 50 kg

DRUGS (6)
  1. CHANTIX [Suspect]
     Indication: SMOKING CESSATION THERAPY
     Route: 048
     Dates: start: 20071101
  2. OXYCODONE HCL [Concomitant]
     Indication: PAIN
  3. MULTI-VITAMINS [Concomitant]
  4. CALCIUM [Concomitant]
  5. VITAMIN D [Concomitant]
  6. MAGNESIUM [Concomitant]

REACTIONS (7)
  - COLD SWEAT [None]
  - DRY MOUTH [None]
  - GASTROINTESTINAL DISORDER [None]
  - GASTROINTESTINAL SOUNDS ABNORMAL [None]
  - MALAISE [None]
  - NAUSEA [None]
  - THROAT IRRITATION [None]
